FAERS Safety Report 24898525 (Version 1)
Quarter: 2025Q1

REPORT INFORMATION
  Report Type: Report from Study
  Country: CA (occurrence: CA)
  Receive Date: 20250129
  Receipt Date: 20250129
  Transmission Date: 20250408
  Serious: Yes (Other)
  Sender: TAKEDA
  Company Number: CA-TAKEDA-2025TUS008296

PATIENT
  Age: 27 Year
  Sex: Male

DRUGS (12)
  1. VEDOLIZUMAB [Suspect]
     Active Substance: VEDOLIZUMAB
     Indication: Colitis ulcerative
  2. VEDOLIZUMAB [Suspect]
     Active Substance: VEDOLIZUMAB
     Dosage: 300 MILLIGRAM, Q4WEEKS
     Dates: start: 20191022
  3. PREDNISONE [Concomitant]
     Active Substance: PREDNISONE
  4. CLONAZEPAM [Concomitant]
     Active Substance: CLONAZEPAM
  5. FERROUS SULFATE [Concomitant]
     Active Substance: FERROUS SULFATE
  6. VITAMIN D [Concomitant]
     Active Substance: VITAMIN D NOS
  7. ZOPICLONE [Concomitant]
     Active Substance: ZOPICLONE
  8. Serc [Concomitant]
  9. OLANZAPINE [Concomitant]
     Active Substance: OLANZAPINE
  10. GABAPENTIN [Concomitant]
     Active Substance: GABAPENTIN
     Dosage: 300 MILLIGRAM, BID
     Dates: start: 20230301
  11. CARBAMAZEPINE [Concomitant]
     Active Substance: CARBAMAZEPINE
  12. ESCITALOPRAM [Concomitant]
     Active Substance: ESCITALOPRAM OXALATE

REACTIONS (2)
  - Nail infection [Unknown]
  - Off label use [Unknown]

NARRATIVE: CASE EVENT DATE: 20191022
